FAERS Safety Report 26094889 (Version 1)
Quarter: 2025Q4

REPORT INFORMATION
  Report Type: Report from Study
  Country: US (occurrence: US)
  Receive Date: 20251126
  Receipt Date: 20251126
  Transmission Date: 20260117
  Serious: Yes (Hospitalization, Other)
  Sender: ABBVIE
  Company Number: US-ABBVIE-6563679

PATIENT
  Age: 85 Year
  Sex: Female
  Weight: 88.45 kg

DRUGS (2)
  1. SYNTHROID [Suspect]
     Active Substance: LEVOTHYROXINE SODIUM
     Indication: Thyroid therapy
     Dosage: FORM STRENGTH: 112 MICROGRAM
     Route: 048
     Dates: start: 1985
  2. CRESTOR [Concomitant]
     Active Substance: ROSUVASTATIN CALCIUM
     Indication: Blood cholesterol abnormal

REACTIONS (5)
  - Fall [Not Recovered/Not Resolved]
  - Asthenia [Recovering/Resolving]
  - Loss of consciousness [Recovered/Resolved]
  - Urinary tract infection [Recovering/Resolving]
  - Malaise [Unknown]

NARRATIVE: CASE EVENT DATE: 20251001
